FAERS Safety Report 18447583 (Version 2)
Quarter: 2020Q4

REPORT INFORMATION
  Report Type: Report from Study
  Country: US (occurrence: US)
  Receive Date: 20201101
  Receipt Date: 20201113
  Transmission Date: 20210114
  Serious: Yes (Hospitalization)
  Sender: FDA-Public Use
  Company Number: US-ROCHE-2693087

PATIENT
  Age: 48 Year
  Sex: Female
  Weight: 55.6 kg

DRUGS (49)
  1. RO6958688 (T-CELL BISPECIFIC MONOCLONAL ANTIBODY) [Suspect]
     Active Substance: CIBISATAMAB
     Indication: COLORECTAL ADENOCARCINOMA
     Dosage: AT A FIXED DOSE OF 100 MG BY IV INFUSION ON DAY 1 OF EACH 21-DAY CYCLE.?DATE OF MOST RECENT DOSE (10
     Route: 042
     Dates: start: 20201006
  2. ACETAMINOPHEN. [Concomitant]
     Active Substance: ACETAMINOPHEN
     Route: 048
     Dates: start: 20200922, end: 20200922
  3. BUPROPION. [Concomitant]
     Active Substance: BUPROPION
     Indication: DEPRESSION
     Dates: start: 20200731
  4. METOCLOPRAMIDE. [Concomitant]
     Active Substance: METOCLOPRAMIDE
     Indication: DYSPEPSIA
     Dates: start: 20200624
  5. POLYETHYLENE GLYCOL [Concomitant]
     Active Substance: POLYETHYLENE GLYCOLS
     Indication: CONSTIPATION
     Dates: start: 20190210
  6. METHYLPREDNISOLONE. [Concomitant]
     Active Substance: METHYLPREDNISOLONE
     Route: 048
     Dates: start: 20201006, end: 20201006
  7. METHYLPREDNISOLONE. [Concomitant]
     Active Substance: METHYLPREDNISOLONE
     Route: 042
     Dates: start: 20201027, end: 20201027
  8. DIPHENHYDRAMINE. [Concomitant]
     Active Substance: DIPHENHYDRAMINE
     Route: 048
     Dates: start: 20201006, end: 20201006
  9. INDOMETACIN [Concomitant]
     Active Substance: INDOMETHACIN
     Route: 048
     Dates: start: 20201006, end: 20201006
  10. ACETAMINOPHEN. [Concomitant]
     Active Substance: ACETAMINOPHEN
     Route: 048
     Dates: start: 20201006, end: 20201006
  11. PRILOCAINE [Concomitant]
     Active Substance: PRILOCAINE
     Indication: LOCAL ANAESTHESIA
     Dosage: LOCAL ANESTHETIC FOR MEDIPORT
     Dates: start: 20190930
  12. MIRTAZAPINE. [Concomitant]
     Active Substance: MIRTAZAPINE
     Indication: DEPRESSION
     Dates: start: 20200608
  13. DIPHENHYDRAMINE. [Concomitant]
     Active Substance: DIPHENHYDRAMINE
     Route: 048
     Dates: start: 20201026, end: 20201026
  14. SODIUM CHLORIDE. [Concomitant]
     Active Substance: SODIUM CHLORIDE
     Route: 042
     Dates: start: 20201006, end: 20201006
  15. AZELAIC ACID. [Concomitant]
     Active Substance: AZELAIC ACID
     Indication: ACNE
     Dates: start: 20180906
  16. CIPROFLOXACIN. [Concomitant]
     Active Substance: CIPROFLOXACIN
     Indication: URINARY TRACT INFECTION
     Dates: start: 20201009, end: 20201014
  17. NORMAL SALINE [Concomitant]
     Active Substance: SODIUM CHLORIDE
     Indication: HYPOTENSION
     Route: 040
     Dates: start: 20201007, end: 20201007
  18. ATEZOLIZUMAB. [Suspect]
     Active Substance: ATEZOLIZUMAB
     Indication: COLORECTAL ADENOCARCINOMA
     Dosage: AT A FIXED DOSE OF 1200 MG BY IV INFUSION ON DAY 1 OF EACH 21-DAY CYCLE.?DATE OF MOST RECENT DOSE OF
     Route: 042
     Dates: start: 20201006
  19. ACETAMINOPHEN. [Concomitant]
     Active Substance: ACETAMINOPHEN
     Indication: PYREXIA
     Dosage: FOR PAIN CONTROL
     Dates: start: 20190210
  20. LIDOCAINE. [Concomitant]
     Active Substance: LIDOCAINE
     Indication: LOCAL ANAESTHESIA
     Dosage: LOCAL ANESTHETIC FOR MEDIPORT
     Dates: start: 20190930
  21. SPIRONOLACTONE. [Concomitant]
     Active Substance: SPIRONOLACTONE
     Indication: ACNE
     Dates: start: 20200416, end: 20201005
  22. VITAMIN C [Concomitant]
     Active Substance: ASCORBIC ACID
     Dates: start: 201901
  23. NITROFURANTOIN. [Concomitant]
     Active Substance: NITROFURANTOIN
     Indication: URINARY TRACT INFECTION
     Dates: start: 20201007, end: 20201009
  24. LOPERAMIDE [Concomitant]
     Active Substance: LOPERAMIDE
     Indication: DIARRHOEA
     Dates: start: 20201007, end: 20201010
  25. OXYGEN. [Concomitant]
     Active Substance: OXYGEN
     Indication: HYPOXIA
     Dates: start: 20201007, end: 20201007
  26. METHYLPREDNISOLONE. [Concomitant]
     Active Substance: METHYLPREDNISOLONE
     Route: 048
     Dates: start: 20201007, end: 20201007
  27. SODIUM CHLORIDE. [Concomitant]
     Active Substance: SODIUM CHLORIDE
     Route: 048
     Dates: start: 20201026, end: 20201026
  28. ACETAMINOPHEN. [Concomitant]
     Active Substance: ACETAMINOPHEN
     Dates: start: 20201007, end: 20201010
  29. OXYMETAZOLINE [Concomitant]
     Active Substance: OXYMETAZOLINE
     Indication: ACNE
     Dates: start: 20180815, end: 20201013
  30. MORPHINE [Concomitant]
     Active Substance: MORPHINE
     Indication: BACK PAIN
     Route: 042
  31. PANTOPRAZOLE [Concomitant]
     Active Substance: PANTOPRAZOLE
     Indication: ABDOMINAL PAIN UPPER
     Dates: start: 20200927
  32. ACETAMINOPHEN. [Concomitant]
     Active Substance: ACETAMINOPHEN
     Route: 048
     Dates: start: 20201026, end: 20201026
  33. GABAPENTIN. [Concomitant]
     Active Substance: GABAPENTIN
     Indication: BACK PAIN
     Dates: start: 20180910
  34. METRONIDAZOLE. [Concomitant]
     Active Substance: METRONIDAZOLE
     Indication: URINARY TRACT INFECTION
     Dates: start: 20201009, end: 20201014
  35. POTASSIUM REPLACEMENT (UNK INGREDIENTS) [Concomitant]
     Indication: HYPOKALAEMIA
     Route: 042
     Dates: start: 20201012, end: 20201012
  36. OBINUTUZUMAB. [Suspect]
     Active Substance: OBINUTUZUMAB
     Indication: COLORECTAL ADENOCARCINOMA
     Dosage: 2 WEEKS BEFORE CYCLE 1, DAY 1 (CYCLE = 21 DAYS)?DATE OF MOST RECENT DOSE (1000 MG) OF STUDY DRUG PRI
     Route: 042
     Dates: start: 20200922
  37. ASPIRIN. [Concomitant]
     Active Substance: ASPIRIN
     Dates: start: 20191230, end: 20201026
  38. METHYLPREDNISOLONE. [Concomitant]
     Active Substance: METHYLPREDNISOLONE
     Route: 042
     Dates: start: 20200923, end: 20200923
  39. DIPHENHYDRAMINE. [Concomitant]
     Active Substance: DIPHENHYDRAMINE
     Route: 048
     Dates: start: 20200922, end: 20200922
  40. INDOMETACIN [Concomitant]
     Active Substance: INDOMETHACIN
     Route: 048
     Dates: start: 20201026, end: 20201026
  41. ACETAMINOPHEN. [Concomitant]
     Active Substance: ACETAMINOPHEN
     Route: 048
     Dates: start: 20200923, end: 20200923
  42. METOCLOPRAMIDE. [Concomitant]
     Active Substance: METOCLOPRAMIDE
     Route: 048
     Dates: start: 20201006, end: 20201006
  43. METHYLPHENIDATE. [Concomitant]
     Active Substance: METHYLPHENIDATE
     Indication: DEPRESSION
     Dates: start: 20200731
  44. HYDROCODONE/ACETAMINOPHEN [Concomitant]
     Active Substance: ACETAMINOPHEN\HYDROCODONE
     Indication: BACK PAIN
     Dates: start: 20200923
  45. BOTOX [Concomitant]
     Active Substance: ONABOTULINUMTOXINA
     Dates: start: 20200601
  46. METHYLPREDNISOLONE. [Concomitant]
     Active Substance: METHYLPREDNISOLONE
     Route: 042
     Dates: start: 20200922, end: 20200922
  47. METHYLPREDNISOLONE. [Concomitant]
     Active Substance: METHYLPREDNISOLONE
     Route: 042
     Dates: start: 20201006, end: 20201006
  48. METHYLPREDNISOLONE. [Concomitant]
     Active Substance: METHYLPREDNISOLONE
     Route: 042
     Dates: start: 20201026, end: 20201026
  49. DIPHENHYDRAMINE. [Concomitant]
     Active Substance: DIPHENHYDRAMINE
     Route: 048
     Dates: start: 20200923, end: 20200923

REACTIONS (4)
  - Tumour inflammation [Recovered/Resolved]
  - Colitis [Recovered/Resolved]
  - Cytokine release syndrome [Recovered/Resolved]
  - Tumour pain [Recovered/Resolved]

NARRATIVE: CASE EVENT DATE: 20201006
